FAERS Safety Report 17508169 (Version 1)
Quarter: 2020Q1

REPORT INFORMATION
  Report Type: Spontaneous
  Country: UA (occurrence: UA)
  Receive Date: 20200306
  Receipt Date: 20200306
  Transmission Date: 20200409
  Serious: Yes (Other)
  Sender: FDA-Public Use
  Company Number: UA-TEVA-2020-UA-1194309

PATIENT
  Age: 59 Year
  Sex: Male

DRUGS (5)
  1. EQUORAL [Suspect]
     Active Substance: CYCLOSPORINE
     Indication: IMMUNOSUPPRESSION
     Dosage: 200 MILLIGRAM DAILY;
     Route: 048
     Dates: start: 20040413
  2. MYCOPHENOLATE MOFETIL. [Concomitant]
     Active Substance: MYCOPHENOLATE MOFETIL
  3. EQUORAL [Suspect]
     Active Substance: CYCLOSPORINE
     Indication: RENAL TRANSPLANT
  4. PREDNISOLONE. [Concomitant]
     Active Substance: PREDNISOLONE
  5. IMURAN [Concomitant]
     Active Substance: AZATHIOPRINE

REACTIONS (5)
  - Pain [Recovered/Resolved]
  - Renal impairment [Recovered/Resolved]
  - Arthralgia [Recovered/Resolved]
  - Abdominal pain upper [Recovered/Resolved]
  - Complications of transplant surgery [Recovered/Resolved]

NARRATIVE: CASE EVENT DATE: 20040413
